FAERS Safety Report 8028650-4 (Version None)
Quarter: 2012Q1

REPORT INFORMATION
  Report Type: 
  Country: None (occurrence: None)
  Receive Date: 20120106
  Receipt Date: 20111227
  Transmission Date: 20120608
  Serious: Yes (Hospitalization, Other)
  Sender: FDA-Public Use
  Company Number: US-ACTELION-A-US2011-49498

PATIENT

DRUGS (10)
  1. ULTRAVATE [Concomitant]
  2. IMODIUM [Concomitant]
  3. FERROUS SULFATE TAB [Concomitant]
  4. CENTURY PLUS [Concomitant]
  5. TRACLEER [Suspect]
     Indication: PULMONARY ARTERIAL HYPERTENSION
     Dosage: 250 MG, BID
     Route: 048
     Dates: start: 20060101, end: 20080101
  6. REVATIO [Concomitant]
  7. TRACLEER [Suspect]
     Dosage: 125 MG, BID
     Route: 048
     Dates: start: 20080101
  8. CYANOCOBALAMIN [Concomitant]
  9. PROGRAF [Concomitant]
  10. FUROSEMIDE [Concomitant]

REACTIONS (16)
  - HEPATIC NEOPLASM MALIGNANT [None]
  - PNEUMONIA [None]
  - FACE OEDEMA [None]
  - LIVER TRANSPLANT [None]
  - BILIARY ANASTOMOSIS COMPLICATION [None]
  - HEPATIC CONGESTION [None]
  - EYE SWELLING [None]
  - ADRENALECTOMY [None]
  - BILE DUCT STENT INSERTION [None]
  - PULMONARY HYPERTENSION [None]
  - BILIARY DILATATION [None]
  - HEPATITIS C [None]
  - METASTASES TO ADRENALS [None]
  - ABDOMINAL HERNIA REPAIR [None]
  - CARDIAC SEPTAL DEFECT [None]
  - RHINITIS ALLERGIC [None]
